FAERS Safety Report 9767456 (Version 2)
Quarter: 2014Q2

REPORT INFORMATION
  Report Type: Spontaneous
  Country: BE (occurrence: None)
  Receive Date: 20131016
  Receipt Date: 20131016
  Transmission Date: 20141212
  Serious: Yes (Death)
  Sender: FDA-Public Use
  Company Number: US-2013-2916

PATIENT
  Sex: 0

DRUGS (3)
  1. VINORELBINE INN (VINORELBINE TARTRATE) SOLUTION FOR INJECTION [Suspect]
     Indication: NON-SMALL CELL LUNG CANCER
     Dosage: 25 MG/M2, CYCLICAL (1/21), INTRAVENOUS
     Route: 042
  2. CISPLATIN (CISPLATIN) [Suspect]
     Indication: NON-SMALL CELL LUNG CANCER
     Dosage: 60 MG/M2, DAY 1, CYCLICAL (1/21), INTRAVENOUS
     Route: 042
  3. GEMCITABINE (GEMCITABINE) [Suspect]
     Indication: NON-SMALL CELL LUNG CANCER
     Dosage: 1000 MG/M2, CYCLICAL (1/21); INTRAVENOUS
     Route: 042

REACTIONS (3)
  - Death [None]
  - Septic shock [None]
  - Cardiac failure [None]
